FAERS Safety Report 8049507-9 (Version None)
Quarter: 2012Q1

REPORT INFORMATION
  Report Type: 
  Country: None (occurrence: None)
  Receive Date: 20120117
  Receipt Date: 20120109
  Transmission Date: 20120608
  Serious: Yes (Disabling, Other)
  Sender: FDA-Public Use
  Company Number: US-ABBOTT-12P-163-0890309-00

PATIENT
  Sex: Male

DRUGS (2)
  1. METHOTREXATE [Concomitant]
     Indication: PRODUCT USED FOR UNKNOWN INDICATION
  2. HUMIRA [Suspect]
     Indication: PRODUCT USED FOR UNKNOWN INDICATION

REACTIONS (7)
  - UVEITIS [None]
  - KERATOPATHY [None]
  - VISUAL IMPAIRMENT [None]
  - CATARACT [None]
  - BLINDNESS [None]
  - CEREBRAL SMALL VESSEL ISCHAEMIC DISEASE [None]
  - HYPOTONY OF EYE [None]
